FAERS Safety Report 8556344-5 (Version None)
Quarter: 2012Q3

REPORT INFORMATION
  Report Type: 
  Country: None (occurrence: None)
  Receive Date: 20120801
  Receipt Date: 20120723
  Transmission Date: 20120928
  Serious: Yes (Other)
  Sender: FDA-Public Use
  Company Number: TW-JNJFOC-20120711853

PATIENT
  Sex: Male

DRUGS (2)
  1. PREDNISOLONE [Concomitant]
     Indication: PROSTATE CANCER
     Dosage: REPLACEMENT DOSES
     Route: 065
  2. KETOCONAZOLE [Suspect]
     Indication: PROSTATE CANCER
     Route: 065

REACTIONS (2)
  - PROSTATIC SPECIFIC ANTIGEN DECREASED [None]
  - OFF LABEL USE [None]
